FAERS Safety Report 23790359 (Version 1)
Quarter: 2024Q2

REPORT INFORMATION
  Report Type: Spontaneous
  Country: CA (occurrence: CA)
  Receive Date: 20240427
  Receipt Date: 20240427
  Transmission Date: 20240716
  Serious: Yes (Other)
  Sender: FDA-Public Use
  Company Number: CA-TEVA-VS-3190082

PATIENT
  Age: 53 Year
  Sex: Male

DRUGS (3)
  1. CLARITHROMYCIN [Suspect]
     Active Substance: CLARITHROMYCIN
     Indication: Mycobacterium abscessus infection
     Route: 048
  2. AMIKACIN SULFATE [Suspect]
     Active Substance: AMIKACIN SULFATE
     Indication: Mycobacterium abscessus infection
     Dosage: LIQUID INTRAMUSCULAR
     Route: 042
  3. AMIKACIN SULFATE [Suspect]
     Active Substance: AMIKACIN SULFATE
     Indication: Mycobacterium abscessus infection
     Dosage: TIME INTERVAL: 0.33333333 WEEKS: LIQUID INTRAMUSCULAR
     Route: 042

REACTIONS (2)
  - Deafness unilateral [Recovered/Resolved]
  - Tinnitus [Recovered/Resolved]
